FAERS Safety Report 12716266 (Version 1)
Quarter: 2016Q3

REPORT INFORMATION
  Report Type: Report from Study
  Country: BR (occurrence: BR)
  Receive Date: 20160906
  Receipt Date: 20160906
  Transmission Date: 20161109
  Serious: Yes (Disabling, Other)
  Sender: FDA-Public Use
  Company Number: PHHY2016BR121796

PATIENT
  Age: 89 Year
  Sex: Female
  Weight: 45 kg

DRUGS (2)
  1. ACLASTA [Suspect]
     Active Substance: ZOLEDRONIC ACID
     Indication: OSTEOPOROSIS
     Dosage: 5 MG, Q12MO
     Route: 042
     Dates: start: 20130129
  2. ACLASTA [Suspect]
     Active Substance: ZOLEDRONIC ACID
     Indication: BONE DISORDER
     Route: 065
     Dates: start: 20150331, end: 20150331

REACTIONS (2)
  - Fall [Recovered/Resolved]
  - Spinal fracture [Recovered/Resolved]

NARRATIVE: CASE EVENT DATE: 20160321
